FAERS Safety Report 4482477-9 (Version None)
Quarter: 2004Q3

REPORT INFORMATION
  Report Type: 
  Country: None (occurrence: None)
  Receive Date: 20040921
  Receipt Date: 20040512
  Transmission Date: 20050211
  Serious: Yes (Hospitalization)
  Sender: FDA-Public Use
  Company Number: 163-20785-04050358

PATIENT
  Age: 57 Year
  Sex: Female
  Weight: 72.3 kg

DRUGS (23)
  1. THALOMID [Suspect]
     Indication: MULTIPLE MYELOMA
     Dosage: 200; 100; 50; 100 MG, QD, ORAL
     Route: 048
     Dates: start: 20041129, end: 20020226
  2. THALOMID [Suspect]
     Indication: MULTIPLE MYELOMA
     Dosage: 200; 100; 50; 100 MG, QD, ORAL
     Route: 048
     Dates: start: 20020227, end: 20020409
  3. THALOMID [Suspect]
     Indication: MULTIPLE MYELOMA
     Dosage: 200; 100; 50; 100 MG, QD, ORAL
     Route: 048
     Dates: start: 20020605, end: 20021201
  4. THALOMID [Suspect]
     Indication: MULTIPLE MYELOMA
     Dosage: 200; 100; 50; 100 MG, QD, ORAL
     Route: 048
     Dates: start: 20021201, end: 20030601
  5. DEXAMETHASONE [Suspect]
     Indication: MULTIPLE MYELOMA
     Dosage: 40 MG, X4 DAYS Q 28 DAYS, ORAL
     Route: 048
     Dates: start: 20011129, end: 20021201
  6. DEXAMETHASONE [Suspect]
     Dosage: DAYS 1-4, 9-12, 17-20, Q 3 MO, ORAL
     Route: 048
     Dates: start: 20021201
  7. INTERFERON ALFA (INTERFERON ALFA) (INJECTION) [Suspect]
     Indication: MULTIPLE MYELOMA
     Dosage: 2.5 MILLION UNITS, MONTHLY, SUBCUTANEOUS
     Route: 058
     Dates: start: 20021201, end: 20031201
  8. PROCRIT [Concomitant]
  9. AREDIA [Concomitant]
  10. FOLATE (FOLATE SODIUM) [Concomitant]
  11. DAPSONE [Concomitant]
  12. FAMVIR [Concomitant]
  13. DIFLUCAN [Concomitant]
  14. ZANTAC [Concomitant]
  15. CALCIUM (CALCIUM) [Concomitant]
  16. PLAQUENIL [Concomitant]
  17. ASPIRIN [Concomitant]
  18. PLAVIX [Concomitant]
  19. VASOTEC [Concomitant]
  20. AVANDIA [Concomitant]
  21. ROCEPHIN [Concomitant]
  22. ACTONEL [Concomitant]
  23. MULTIVITAMIN (MULTIVITAMINS) [Concomitant]

REACTIONS (10)
  - CEREBROVASCULAR ACCIDENT [None]
  - HAEMOGLOBIN DECREASED [None]
  - HYPERGLYCAEMIA [None]
  - MENINGITIS PNEUMOCOCCAL [None]
  - PLEURITIC PAIN [None]
  - PNEUMONIA PNEUMOCOCCAL [None]
  - PYREXIA [None]
  - RASH [None]
  - SINUSITIS [None]
  - THROMBOCYTOPENIA [None]
